FAERS Safety Report 6710328-8 (Version None)
Quarter: 2010Q2

REPORT INFORMATION
  Report Type: 
  Country: None (occurrence: None)
  Receive Date: 20100504
  Receipt Date: 20100426
  Transmission Date: 20101027
  Serious: Yes (Other)
  Sender: FDA-Public Use
  Company Number: PHHY2009BR26913

PATIENT
  Age: 31 Year
  Sex: Female
  Weight: 65 kg

DRUGS (2)
  1. ZELMAC [Suspect]
     Dosage: 1 DF, UNK
     Route: 048
  2. ZELMAC [Suspect]
     Dosage: 1 DF, ONCE/SINGLE
     Route: 048

REACTIONS (10)
  - ABDOMINAL PAIN [None]
  - CAESAREAN SECTION [None]
  - CONSTIPATION [None]
  - DISCOMFORT [None]
  - DRUG EXPOSURE DURING PREGNANCY [None]
  - DRUG EXPOSURE VIA BREAST MILK [None]
  - FLATULENCE [None]
  - GASTROINTESTINAL MOTILITY DISORDER [None]
  - MALAISE [None]
  - NORMAL NEWBORN [None]
